FAERS Safety Report 16384260 (Version 2)
Quarter: 2019Q2

REPORT INFORMATION
  Report Type: Report from Study
  Country: GB (occurrence: GB)
  Receive Date: 20190603
  Receipt Date: 20190611
  Transmission Date: 20190711
  Serious: Yes (Hospitalization)
  Sender: FDA-Public Use
  Company Number: GB-JNJFOC-20190535668

PATIENT
  Age: 55 Year
  Sex: Male

DRUGS (1)
  1. STELARA [Suspect]
     Active Substance: USTEKINUMAB
     Indication: CROHN^S DISEASE
     Route: 058
     Dates: start: 2018

REACTIONS (8)
  - Product dose omission [Unknown]
  - Diarrhoea [Not Recovered/Not Resolved]
  - Arthralgia [Unknown]
  - Lethargy [Unknown]
  - Syncope [Unknown]
  - Skin laceration [Unknown]
  - Cardiac disorder [Unknown]
  - Malnutrition [Unknown]

NARRATIVE: CASE EVENT DATE: 201904
